FAERS Safety Report 16111129 (Version 1)
Quarter: 2019Q1

REPORT INFORMATION
  Report Type: Spontaneous
  Country: US (occurrence: US)
  Receive Date: 20190325
  Receipt Date: 20190325
  Transmission Date: 20190418
  Serious: Yes (Disabling, Other)
  Sender: FDA-Public Use
  Company Number: US-BAYER-2019-051603

PATIENT
  Age: 66 Year
  Sex: Male

DRUGS (10)
  1. CIPRO [Suspect]
     Active Substance: CIPROFLOXACIN HYDROCHLORIDE
     Indication: SINUSITIS
     Dosage: 500 MG, BID
     Route: 048
     Dates: start: 20180325, end: 20180401
  2. ACETAMINOPHEN. [Concomitant]
     Active Substance: ACETAMINOPHEN
     Indication: PAIN
  3. CIPRO [Suspect]
     Active Substance: CIPROFLOXACIN HYDROCHLORIDE
     Indication: BRONCHITIS
     Dosage: UNK
     Dates: start: 201608
  4. CIPRO [Suspect]
     Active Substance: CIPROFLOXACIN HYDROCHLORIDE
     Indication: DIVERTICULITIS
     Dosage: UNK
     Dates: start: 201607
  5. FLAGYL [Concomitant]
     Active Substance: METRONIDAZOLE\METRONIDAZOLE HYDROCHLORIDE
     Indication: DIVERTICULITIS
     Dosage: 500 MG, Q8HR
     Route: 048
     Dates: start: 20180325
  6. ACETAMINOPHEN. [Concomitant]
     Active Substance: ACETAMINOPHEN
     Indication: PYREXIA
     Dosage: 325 MG, PRN
     Route: 048
  7. NORCO [Concomitant]
     Active Substance: ACETAMINOPHEN\HYDROCODONE BITARTRATE
     Indication: PAIN
     Dosage: UNK UNK, PRN
     Route: 048
  8. VALIUM [Concomitant]
     Active Substance: DIAZEPAM
     Indication: MUSCLE SPASMS
     Dosage: 5 MG, PRN
     Route: 048
  9. CIPRO [Suspect]
     Active Substance: CIPROFLOXACIN HYDROCHLORIDE
     Indication: GASTRITIS
     Dosage: UNK
     Route: 042
     Dates: start: 20180325
  10. CHLORDIAZEPOXIDE;CLIDINIUM [Concomitant]
     Indication: DYSPEPSIA
     Dosage: UNK UNK, PRN
     Route: 048

REACTIONS (25)
  - Tendon rupture [None]
  - Gallbladder hypofunction [None]
  - Muscular weakness [Not Recovered/Not Resolved]
  - Insomnia [Not Recovered/Not Resolved]
  - Agitation [None]
  - Dizziness [None]
  - Nausea [None]
  - Asthenia [None]
  - Toxicity to various agents [None]
  - Feeling abnormal [None]
  - Joint noise [None]
  - Muscle twitching [None]
  - Dizziness [None]
  - Neuropathy peripheral [Not Recovered/Not Resolved]
  - Blood pressure increased [None]
  - Arthralgia [None]
  - Ligament pain [None]
  - Constipation [None]
  - Muscular weakness [None]
  - Pain in extremity [None]
  - Adverse drug reaction [None]
  - Pain [None]
  - Tremor [None]
  - Pain in extremity [None]
  - Blood pressure systolic increased [None]

NARRATIVE: CASE EVENT DATE: 2016
